FAERS Safety Report 24763632 (Version 2)
Quarter: 2025Q3

REPORT INFORMATION
  Report Type: Spontaneous
  Country: US (occurrence: US)
  Receive Date: 20241223
  Receipt Date: 20250816
  Transmission Date: 20251020
  Serious: Yes (Other)
  Sender: ALEXION PHARMACEUTICALS
  Company Number: US-ASTRAZENECA-202412USA015490US

PATIENT
  Age: 56 Year
  Sex: Female

DRUGS (2)
  1. ROSUVASTATIN [Suspect]
     Active Substance: ROSUVASTATIN
     Route: 065
  2. LORBRENA [Suspect]
     Active Substance: LORLATINIB
     Dosage: UNK UNK, QD
     Route: 065

REACTIONS (9)
  - Neuropathy peripheral [Unknown]
  - Pain in extremity [Unknown]
  - Oedema [Unknown]
  - Blood cholesterol increased [Unknown]
  - Weight increased [Unknown]
  - Memory impairment [Unknown]
  - Headache [Unknown]
  - Hypertension [Unknown]
  - Myalgia [Unknown]
